FAERS Safety Report 4552635-3 (Version None)
Quarter: 2005Q1

REPORT INFORMATION
  Report Type: 
  Country: None (occurrence: None)
  Receive Date: 20050114
  Receipt Date: 20050105
  Transmission Date: 20050727
  Serious: Yes (Other)
  Sender: FDA-Public Use
  Company Number: NO-JNJFOC-20041203760

PATIENT
  Sex: Female

DRUGS (14)
  1. REMICADE [Suspect]
     Indication: RHEUMATOID ARTHRITIS
     Dosage: 17 INFUSIONS
     Route: 042
  2. SANDIMMUNE [Suspect]
     Indication: RHEUMATOID ARTHRITIS
     Route: 049
  3. CELESTON [Concomitant]
     Dosage: 1ML WITH 3MG BETAMETHASONE ACETATE +3MG BETAMETHASONE
     Route: 030
  4. PREDNISOLONE [Concomitant]
  5. VIOXX [Concomitant]
     Dosage: STOPPED PRIOR TO 21-OCT-2004 DUE TO MEDIA ATTENTION ON CARDIOVASCULAR EVENTS
  6. CELEBRA [Concomitant]
  7. NEXIUM [Concomitant]
  8. PARALGIN FORTE [Concomitant]
  9. PARALGIN FORTE [Concomitant]
     Dosage: COMBINATION TABLET CODEINE 30MG + PARACETAMOL 400MG
  10. SOBRIL [Concomitant]
  11. CALCIGRAN FORTE [Concomitant]
  12. CALCIGRAN FORTE [Concomitant]
  13. CALCIGRAN FORTE [Concomitant]
  14. CALCIGRAN FORTE [Concomitant]

REACTIONS (7)
  - ARTHRALGIA [None]
  - BOWEN'S DISEASE [None]
  - HYPOAESTHESIA [None]
  - PAIN IN EXTREMITY [None]
  - PARAESTHESIA [None]
  - PARAKERATOSIS [None]
  - RHEUMATOID ARTHRITIS [None]
